FAERS Safety Report 18753092 (Version 1)
Quarter: 2021Q1

REPORT INFORMATION
  Report Type: Report from Study
  Country: US (occurrence: US)
  Receive Date: 20210118
  Receipt Date: 20210118
  Transmission Date: 20210419
  Serious: Yes (Hospitalization, Other)
  Sender: FDA-Public Use
  Company Number: US-TAKEDA-US201714948

PATIENT
  Age: 59 Year
  Sex: Female
  Weight: 84.35 kg

DRUGS (24)
  1. CINRYZE [Suspect]
     Active Substance: HUMAN C1-ESTERASE INHIBITOR
     Indication: HEREDITARY ANGIOEDEMA
     Dosage: 1500 UNITS, OTHER (MONDAY, WEDNESDAY, FRIDAY)
     Route: 042
     Dates: start: 20170414
  2. CINRYZE [Suspect]
     Active Substance: HUMAN C1-ESTERASE INHIBITOR
     Indication: PROPHYLAXIS
  3. KETOROLAC [Concomitant]
     Active Substance: KETOROLAC TROMETHAMINE
     Indication: PRODUCT USED FOR UNKNOWN INDICATION
     Dosage: UNK, UNKNOWN
     Route: 065
  4. VITAMIN D3 [Concomitant]
     Active Substance: CHOLECALCIFEROL
     Indication: PRODUCT USED FOR UNKNOWN INDICATION
     Dosage: UNK, UNKNOWN
     Route: 065
  5. CINRYZE [Suspect]
     Active Substance: HUMAN C1-ESTERASE INHIBITOR
     Indication: PROPHYLAXIS
  6. FIRAZYR [Suspect]
     Active Substance: ICATIBANT ACETATE
     Indication: IMMUNE SYSTEM DISORDER
     Dosage: 30 MG, AS REQ^D
     Route: 058
     Dates: start: 20111027
  7. ATIVAN [Concomitant]
     Active Substance: LORAZEPAM
     Indication: PRODUCT USED FOR UNKNOWN INDICATION
     Dosage: UNK, UNKNOWN
     Route: 065
  8. CINRYZE [Suspect]
     Active Substance: HUMAN C1-ESTERASE INHIBITOR
     Indication: HEREDITARY ANGIOEDEMA
     Dosage: 1500 UNITS, OTHER (MONDAY, WEDNESDAY, FRIDAY)
     Route: 042
     Dates: start: 20170414
  9. SODIUM CHLORIDE. [Concomitant]
     Active Substance: SODIUM CHLORIDE
     Indication: PRODUCT USED FOR UNKNOWN INDICATION
     Dosage: UNK, UNKNOWN
     Route: 065
  10. DEPAKOTE [Concomitant]
     Active Substance: DIVALPROEX SODIUM
     Indication: PRODUCT USED FOR UNKNOWN INDICATION
     Dosage: UNK, UNKNOWN
     Route: 065
  11. CINRYZE [Suspect]
     Active Substance: HUMAN C1-ESTERASE INHIBITOR
     Indication: HEREDITARY ANGIOEDEMA
     Dosage: 1500 UNITS, OTHER (MONDAY, WEDNESDAY, FRIDAY)
     Route: 042
     Dates: start: 20170414
  12. LITHIUM CARBONATE. [Concomitant]
     Active Substance: LITHIUM CARBONATE
     Indication: PRODUCT USED FOR UNKNOWN INDICATION
     Dosage: UNK, UNKNOWN
     Route: 065
  13. STERILE WATER [Concomitant]
     Active Substance: WATER
     Indication: PRODUCT USED FOR UNKNOWN INDICATION
     Dosage: UNK, UNKNOWN
     Route: 065
  14. FLUOXETINE [Concomitant]
     Active Substance: FLUOXETINE HYDROCHLORIDE
     Indication: PRODUCT USED FOR UNKNOWN INDICATION
     Dosage: UNK, UNKNOWN
     Route: 065
  15. FIRAZYR [Suspect]
     Active Substance: ICATIBANT ACETATE
     Indication: IMMUNE SYSTEM DISORDER
     Dosage: 30 MG, AS REQ^D
     Route: 058
     Dates: start: 20111027
  16. FIRAZYR [Suspect]
     Active Substance: ICATIBANT ACETATE
     Indication: IMMUNE SYSTEM DISORDER
     Dosage: 30 MILLIGRAM, PRN
     Route: 058
     Dates: start: 20111201
  17. DIPHENHYDRAMINE. [Concomitant]
     Active Substance: DIPHENHYDRAMINE
     Indication: PRODUCT USED FOR UNKNOWN INDICATION
     Dosage: UNK, UNKNOWN
     Route: 065
  18. 643 (LANADELUMAB) [Suspect]
     Active Substance: LANADELUMAB
     Indication: IMMUNE SYSTEM DISORDER
     Dosage: 300 MILLIGRAM, Q2WEEKS
     Route: 058
     Dates: start: 20181013
  19. MOVANTIK [Concomitant]
     Active Substance: NALOXEGOL OXALATE
     Indication: PRODUCT USED FOR UNKNOWN INDICATION
     Dosage: UNK, UNKNOWN
     Route: 065
  20. MULTIVITAMINS [VITAMINS NOS] [Concomitant]
     Active Substance: VITAMINS
     Indication: PRODUCT USED FOR UNKNOWN INDICATION
     Dosage: UNK, UNKNOWN
     Route: 065
  21. 643 (LANADELUMAB) [Suspect]
     Active Substance: LANADELUMAB
     Indication: IMMUNE SYSTEM DISORDER
  22. CINRYZE [Suspect]
     Active Substance: HUMAN C1-ESTERASE INHIBITOR
     Indication: PROPHYLAXIS
  23. FIRAZYR [Suspect]
     Active Substance: ICATIBANT ACETATE
     Indication: IMMUNE SYSTEM DISORDER
     Dosage: 30 MILLIGRAM, PRN
     Route: 058
     Dates: start: 20111201
  24. EPINEPHRINE. [Concomitant]
     Active Substance: EPINEPHRINE
     Indication: PRODUCT USED FOR UNKNOWN INDICATION
     Dosage: UNK, UNKNOWN
     Route: 065

REACTIONS (5)
  - Hereditary angioedema [Unknown]
  - Infection [Unknown]
  - Inappropriate schedule of product administration [Not Recovered/Not Resolved]
  - Spinal laminectomy [Unknown]
  - Prescribed overdose [Not Recovered/Not Resolved]

NARRATIVE: CASE EVENT DATE: 20170414
